FAERS Safety Report 7380114-7 (Version None)
Quarter: 2011Q1

REPORT INFORMATION
  Report Type: 
  Country: None (occurrence: None)
  Receive Date: 20110329
  Receipt Date: 20100521
  Transmission Date: 20110831
  Serious: No
  Sender: FDA-Public Use
  Company Number: US-MYLANLABS-2010S1007196

PATIENT
  Age: 44 Year
  Sex: Female

DRUGS (2)
  1. ESTRADIOL [Suspect]
     Dosage: CHANGED PATCHES QW
     Route: 062
  2. ESTRADIOL [Suspect]
     Indication: HOT FLUSH
     Dosage: CHANGED PATCHES QW
     Route: 062

REACTIONS (3)
  - APPLICATION SITE RASH [None]
  - APPLICATION SITE IRRITATION [None]
  - APPLICATION SITE PRURITUS [None]
